FAERS Safety Report 5253596-4 (Version None)
Quarter: 2007Q1

REPORT INFORMATION
  Report Type: 
  Country: None (occurrence: None)
  Receive Date: 20070301
  Receipt Date: 20070214
  Transmission Date: 20070707
  Serious: Yes (Hospitalization)
  Sender: FDA-Public Use
  Company Number: DE-AMGEN-UK211433

PATIENT
  Sex: Female
  Weight: 60 kg

DRUGS (4)
  1. NEULASTA [Suspect]
     Indication: CHEMOTHERAPY
     Route: 058
     Dates: start: 20070126
  2. FLUOROURACIL [Concomitant]
     Route: 065
     Dates: start: 20070116
  3. ETOPOSIDE [Concomitant]
     Route: 065
     Dates: start: 20070116
  4. CYCLOPHOSPHAMIDE [Concomitant]
     Route: 065
     Dates: start: 20070116

REACTIONS (2)
  - LEUKOPENIA [None]
  - LIVER FUNCTION TEST ABNORMAL [None]
